FAERS Safety Report 8971072 (Version 2)
Quarter: 2013Q2

REPORT INFORMATION
  Report Type: Report from Study
  Country: JP (occurrence: JP)
  Receive Date: 20121218
  Receipt Date: 20130625
  Transmission Date: 20140414
  Serious: Yes (Hospitalization, Other)
  Sender: FDA-Public Use
  Company Number: PHHY2012JP115874

PATIENT
  Age: 50 Year
  Sex: Female
  Weight: 50 kg

DRUGS (5)
  1. AFINITOR [Suspect]
     Dosage: 10 MG, DAILY
     Dates: start: 20120105, end: 201202
  2. DECADRON                                /CAN/ [Concomitant]
     Indication: PANCREATIC NEUROENDOCRINE TUMOUR
     Dosage: 2 MG, UNK
  3. OXYCONTIN [Concomitant]
     Indication: PANCREATIC NEUROENDOCRINE TUMOUR
     Dosage: 20 MG, UNK
     Route: 048
  4. TAKEPRON [Concomitant]
     Indication: PANCREATIC NEUROENDOCRINE TUMOUR
     Dosage: 15 MG, UNK
     Route: 048
  5. CLOSTRIDIUM BUTYRICUM [Concomitant]
     Indication: PROPHYLAXIS
     Dosage: 120 MG, UNK
     Route: 048
     Dates: start: 20120312, end: 20130319

REACTIONS (11)
  - Pneumocystis jirovecii pneumonia [Recovered/Resolved]
  - Dyspnoea [Recovered/Resolved]
  - Pyrexia [Recovered/Resolved]
  - C-reactive protein increased [Unknown]
  - Haemoglobin decreased [Unknown]
  - Blood alkaline phosphatase increased [Unknown]
  - Aspartate aminotransferase increased [Unknown]
  - Malignant neoplasm progression [Unknown]
  - Pancreatic neuroendocrine tumour [Unknown]
  - Decreased appetite [Not Recovered/Not Resolved]
  - Diarrhoea [Recovering/Resolving]
